FAERS Safety Report 8967718 (Version 1)
Quarter: 2012Q4

REPORT INFORMATION
  Report Type: Spontaneous
  Country: US (occurrence: None)
  Receive Date: 20121213
  Receipt Date: 20121213
  Transmission Date: 20130627
  Serious: Yes (Disabling, Other)
  Sender: FDA-Public Use
  Company Number: None

PATIENT
  Age: 22 Year
  Sex: Male

DRUGS (1)
  1. DIPHENHYDRAMIN [Suspect]
     Dosage: 300 MG PO DAILY
     Route: 048

REACTIONS (1)
  - Urinary retention [None]
